FAERS Safety Report 6283684-5 (Version None)
Quarter: 2009Q3

REPORT INFORMATION
  Report Type: 
  Country: None (occurrence: None)
  Receive Date: 20090724
  Receipt Date: 20090609
  Transmission Date: 20100115
  Serious: Yes (Other)
  Sender: FDA-Public Use
  Company Number: US-ALEXION-A200900412

PATIENT
  Sex: Male

DRUGS (11)
  1. SOLIRIS [Suspect]
     Indication: PAROXYSMAL NOCTURNAL HAEMOGLOBINURIA
     Dosage: 600 MG, UNK
     Route: 042
     Dates: start: 20090126, end: 20090126
  2. SOLIRIS [Suspect]
     Dosage: 600 MG, QW X4
     Route: 042
     Dates: start: 20090201, end: 20090301
  3. SOLIRIS [Suspect]
     Dosage: 900 MG, Q2W
     Route: 042
  4. COUMADIN [Concomitant]
     Indication: PAROXYSMAL NOCTURNAL HAEMOGLOBINURIA
     Dosage: UNK
     Route: 048
     Dates: start: 20090101, end: 20090201
  5. PREDNISONE TAB [Concomitant]
     Indication: PAROXYSMAL NOCTURNAL HAEMOGLOBINURIA
     Dosage: UNK
     Route: 048
     Dates: start: 20090201, end: 20090201
  6. FOLIC ACID [Concomitant]
     Indication: PAROXYSMAL NOCTURNAL HAEMOGLOBINURIA
     Dosage: 1 MG, QD
     Route: 048
  7. IRON [Concomitant]
     Dosage: 65 MG, QD
     Route: 048
  8. FUROSEMIDE [Concomitant]
     Indication: FLUID RETENTION
     Dosage: 20 MG, BID
     Route: 048
  9. RAMIPRIL [Concomitant]
     Dosage: 25 MG, BID
     Route: 048
  10. METOPROLOL SUCCINATE [Concomitant]
     Dosage: 50 MG, BID
     Route: 048
  11. LIPITOR [Concomitant]
     Dosage: 40 MG, QD
     Route: 048

REACTIONS (3)
  - CHILLS [None]
  - INFECTION [None]
  - PYREXIA [None]
